FAERS Safety Report 5062321-1 (Version None)
Quarter: 2006Q3

REPORT INFORMATION
  Report Type: 
  Country: None (occurrence: None)
  Receive Date: 20060703
  Receipt Date: 20051208
  Transmission Date: 20061208
  Serious: No
  Sender: FDA-Public Use
  Company Number: 2005S1011845

PATIENT
  Age: 35 Year
  Sex: Male

DRUGS (8)
  1. CLOZAPINE [Suspect]
     Indication: SCHIZOPHRENIA
     Dosage: SEE IMAGE
     Route: 048
     Dates: start: 20010405, end: 20051207
  2. CLOZAPINE [Suspect]
     Indication: SCHIZOPHRENIA
     Dosage: SEE IMAGE
     Route: 048
     Dates: start: 20051208
  3. TRAZODONE HCL [Concomitant]
  4. ESCITALOPRAM [Concomitant]
  5. TOLTERODINE TARTRATE [Concomitant]
  6. MAPROTILINE [Concomitant]
  7. HYDROCHLORIDE [Concomitant]
  8. BUPROPION HCL [Concomitant]

REACTIONS (2)
  - GRANULOCYTOPENIA [None]
  - LEUKOPENIA [None]
